FAERS Safety Report 6530966-5 (Version None)
Quarter: 2010Q1

REPORT INFORMATION
  Report Type: 
  Country: None (occurrence: None)
  Receive Date: 20100108
  Receipt Date: 20090727
  Transmission Date: 20100710
  Serious: No
  Sender: FDA-Public Use
  Company Number: A0798820A

PATIENT
  Age: 65 Year
  Sex: Female

DRUGS (7)
  1. LOVAZA [Suspect]
     Dosage: 1G TWICE PER DAY
     Route: 048
     Dates: start: 20090715
  2. TRICOR [Concomitant]
  3. SYNTHROID [Concomitant]
  4. MICARDIS [Concomitant]
  5. ZETIA [Concomitant]
  6. ASPIRIN [Concomitant]
  7. METOPROLOL TARTRATE [Concomitant]

REACTIONS (2)
  - FEELING ABNORMAL [None]
  - LIP SWELLING [None]
